FAERS Safety Report 7669499-1 (Version None)
Quarter: 2011Q3

REPORT INFORMATION
  Report Type: 
  Country: None (occurrence: None)
  Receive Date: 20110808
  Receipt Date: 20110804
  Transmission Date: 20111222
  Serious: Yes (Hospitalization)
  Sender: FDA-Public Use
  Company Number: FR-MERCK-1108FRA00034

PATIENT
  Age: 60 Year
  Sex: Male

DRUGS (4)
  1. ISENTRESS [Suspect]
     Route: 048
     Dates: start: 20090813
  2. TENOFOVIR DISOPROXIL FUMARATE [Suspect]
     Route: 048
     Dates: start: 20090813, end: 20100623
  3. DARUNAVIR [Suspect]
     Route: 048
     Dates: start: 20090813
  4. RITONAVIR [Suspect]
     Route: 048
     Dates: start: 20090813

REACTIONS (1)
  - LACTIC ACIDOSIS [None]
